FAERS Safety Report 13758960 (Version 1)
Quarter: 2017Q3

REPORT INFORMATION
  Report Type: Spontaneous
  Country: US (occurrence: US)
  Receive Date: 20170717
  Receipt Date: 20170717
  Transmission Date: 20171127
  Serious: Yes (Hospitalization)
  Sender: FDA-Public Use
  Company Number: None

PATIENT
  Age: 65 Year
  Sex: Male
  Weight: 68.9 kg

DRUGS (1)
  1. OPDIVO [Suspect]
     Active Substance: NIVOLUMAB
     Indication: SQUAMOUS CELL CARCINOMA
     Dosage: ?          OTHER DOSE:MG;OTHER FREQUENCY:ONCE;?
     Route: 040
     Dates: start: 20170715, end: 20170715

REACTIONS (1)
  - Eye swelling [None]

NARRATIVE: CASE EVENT DATE: 20170716
